FAERS Safety Report 11361138 (Version 4)
Quarter: 2016Q3

REPORT INFORMATION
  Report Type: Report from Study
  Country: JP (occurrence: JP)
  Receive Date: 20150810
  Receipt Date: 20160715
  Transmission Date: 20161109
  Serious: Yes (Hospitalization)
  Sender: FDA-Public Use
  Company Number: JP-EISAI MEDICAL RESEARCH-EC-2015-009394

PATIENT
  Age: 63 Year
  Sex: Male
  Weight: 65 kg

DRUGS (9)
  1. MAGMITT [Concomitant]
     Active Substance: MAGNESIUM OXIDE
  2. NEOSTELIN GREEN [Concomitant]
  3. TEARBALANCE [Concomitant]
     Active Substance: HYALURONATE SODIUM
  4. LOXOPROFEN [Concomitant]
     Active Substance: LOXOPROFEN
  5. ERIBULIN [Suspect]
     Active Substance: ERIBULIN
     Indication: LUNG NEOPLASM MALIGNANT
     Route: 041
     Dates: start: 20120425
  6. TEPRENONE [Concomitant]
     Active Substance: TEPRENONE
  7. URSODEOXYCHOLIC ACID [Concomitant]
     Active Substance: URSODIOL
  8. VEGAMOX [Concomitant]
     Active Substance: MOXIFLOXACIN HYDROCHLORIDE
  9. IBUDILAST [Concomitant]
     Active Substance: IBUDILAST

REACTIONS (2)
  - Dehydration [Recovered/Resolved]
  - Cataract [Recovered/Resolved]

NARRATIVE: CASE EVENT DATE: 20140630
